FAERS Safety Report 10501006 (Version 1)
Quarter: 2014Q4

REPORT INFORMATION
  Report Type: Spontaneous
  Country: US (occurrence: None)
  Receive Date: 20141003
  Receipt Date: 20141003
  Transmission Date: 20150528
  Serious: Yes (Disabling, Other)
  Sender: FDA-Public Use
  Company Number: None

PATIENT
  Age: 60 Year
  Sex: Female
  Weight: 54.43 kg

DRUGS (1)
  1. CLONAZEPAM. [Suspect]
     Active Substance: CLONAZEPAM
     Indication: DRUG THERAPY
     Dosage: 1 PILL, ONCE DAILY, TAKEN BY MOUTH
     Route: 048
     Dates: start: 20130703, end: 20140309

REACTIONS (29)
  - Neuralgia [None]
  - Suicidal ideation [None]
  - Migraine [None]
  - Inflammation [None]
  - Skin fissures [None]
  - Muscular weakness [None]
  - Disturbance in attention [None]
  - Exercise tolerance decreased [None]
  - Scratch [None]
  - Dissociation [None]
  - Pruritus [None]
  - Blood pressure increased [None]
  - Abasia [None]
  - Blood sodium decreased [None]
  - Emotional disorder [None]
  - Depression [None]
  - Fatigue [None]
  - Agoraphobia [None]
  - Decreased interest [None]
  - Musculoskeletal pain [None]
  - Haemorrhage [None]
  - Vision blurred [None]
  - Memory impairment [None]
  - Skin exfoliation [None]
  - Vertigo [None]
  - Dizziness [None]
  - Impaired work ability [None]
  - Depersonalisation [None]
  - Anxiety [None]

NARRATIVE: CASE EVENT DATE: 20130725
